FAERS Safety Report 5660001-2 (Version None)
Quarter: 2008Q1

REPORT INFORMATION
  Report Type: 
  Country: None (occurrence: None)
  Receive Date: 20080306
  Receipt Date: 20080222
  Transmission Date: 20080703
  Serious: Yes (Disabling, Other)
  Sender: FDA-Public Use
  Company Number: SPV1-2008-00405

PATIENT
  Age: 13 Year
  Sex: Male
  Weight: 59 kg

DRUGS (3)
  1. VYVANSE [Suspect]
     Indication: ATTENTION DEFICIT/HYPERACTIVITY DISORDER
     Dosage: 50 MG, 1X/DAY; QE, ORAL
     Route: 048
     Dates: start: 20080210, end: 20080212
  2. HELIXATE [Concomitant]
  3. ACETAMINOPHEN [Concomitant]

REACTIONS (4)
  - CONTUSION [None]
  - HAEMARTHROSIS [None]
  - OFF LABEL USE [None]
  - RASH GENERALISED [None]
